FAERS Safety Report 6691585-3 (Version None)
Quarter: 2010Q2

REPORT INFORMATION
  Report Type: 
  Country: None (occurrence: None)
  Receive Date: 20100422
  Receipt Date: 20100413
  Transmission Date: 20101027
  Serious: Yes (Other)
  Sender: FDA-Public Use
  Company Number: PL-JNJFOC-20100403718

PATIENT

DRUGS (2)
  1. CLADRIBINE [Suspect]
     Indication: CHRONIC LYMPHOCYTIC LEUKAEMIA
     Dosage: THE REGIMEN WAS REPEATED EVERY 28 DAYS FOR UPTO SIX CYCLES
     Route: 042
  2. CYCLOPHOSPHAMIDE [Suspect]
     Indication: CHRONIC LYMPHOCYTIC LEUKAEMIA
     Dosage: THE REGIMEN WAS REPEATED EVERY 28 DAYS FOR UP TO 6 CYCLES
     Route: 042

REACTIONS (1)
  - APLASIA PURE RED CELL [None]
